FAERS Safety Report 5215428-X (Version None)
Quarter: 2007Q1

REPORT INFORMATION
  Report Type: 
  Country: None (occurrence: None)
  Receive Date: 20070123
  Receipt Date: 20070112
  Transmission Date: 20070707
  Serious: Yes (Life-Threatening, Hospitalization, Other)
  Sender: FDA-Public Use
  Company Number: JP-ABBOTT-07P-087-0355669-00

PATIENT
  Age: 34 Year
  Sex: Male
  Weight: 62 kg

DRUGS (5)
  1. CLARITHROMYCIN [Suspect]
     Indication: PNEUMONIA
     Route: 048
     Dates: start: 20061105, end: 20061105
  2. DEXTROMETHORPHAN HYDROBROMIDE HYDRATE [Suspect]
     Indication: PNEUMONIA
     Route: 048
     Dates: start: 20061105, end: 20061105
  3. CEFDITOREN PIVOXIL [Concomitant]
     Indication: BRONCHITIS
     Route: 048
     Dates: start: 20061103, end: 20061105
  4. TRANEXAMIC ACID [Concomitant]
     Indication: BRONCHITIS
     Route: 048
     Dates: start: 20061103, end: 20061105
  5. LOXOPROFEN SODIUM HYDRATE [Concomitant]
     Indication: BRONCHITIS
     Route: 048
     Dates: start: 20061103, end: 20061104

REACTIONS (4)
  - ANAPHYLACTIC REACTION [None]
  - CYANOSIS [None]
  - HYPOXIA [None]
  - LIVER DISORDER [None]
